FAERS Safety Report 7233673-9 (Version None)
Quarter: 2011Q1

REPORT INFORMATION
  Report Type: 
  Country: None (occurrence: None)
  Receive Date: 20110119
  Receipt Date: 20100112
  Transmission Date: 20110831
  Serious: Yes (Other)
  Sender: FDA-Public Use
  Company Number: US-TEVA-218622USA

PATIENT
  Sex: Female

DRUGS (6)
  1. COPAXONE [Suspect]
     Indication: MULTIPLE SCLEROSIS
     Route: 058
     Dates: start: 20090917
  2. SALBUTAMOL [Concomitant]
  3. CONJUGATED ESTROGEN [Concomitant]
  4. M.V.I. [Concomitant]
  5. SALMETEROL [Concomitant]
  6. MODAFINIL [Concomitant]

REACTIONS (8)
  - PARAESTHESIA [None]
  - NAUSEA [None]
  - BACK PAIN [None]
  - FLUSHING [None]
  - FEELING HOT [None]
  - DYSPNOEA [None]
  - DIZZINESS [None]
  - VOMITING [None]
